FAERS Safety Report 4335869-2 (Version None)
Quarter: 2004Q2

REPORT INFORMATION
  Report Type: 
  Country: None (occurrence: None)
  Receive Date: 20040406
  Receipt Date: 20040324
  Transmission Date: 20050107
  Serious: Yes (Other)
  Sender: FDA-Public Use
  Company Number: 2004019921

PATIENT
  Age: 8 Year
  Sex: Male

DRUGS (3)
  1. ZITHROMAX [Suspect]
     Indication: PHARYNGOLARYNGEAL PAIN
     Dosage: ORAL
     Route: 048
     Dates: start: 20040317, end: 20040317
  2. CYPROHEPTADINE HCL [Concomitant]
  3. LYSOZYME (LYSOZYME) [Concomitant]

REACTIONS (6)
  - ACUTE GENERALISED EXANTHEMATOUS PUSTULOSIS [None]
  - CONJUNCTIVAL HYPERAEMIA [None]
  - INTERTRIGO [None]
  - LYMPHADENOPATHY [None]
  - NEUTROPHIL COUNT INCREASED [None]
  - PYREXIA [None]
